FAERS Safety Report 6086631-4 (Version None)
Quarter: 2009Q1

REPORT INFORMATION
  Report Type: 
  Country: None (occurrence: None)
  Receive Date: 20090223
  Receipt Date: 20090211
  Transmission Date: 20090719
  Serious: Yes (Other)
  Sender: FDA-Public Use
  Company Number: IT-AMGEN-US333819

PATIENT
  Sex: Male

DRUGS (4)
  1. ENBREL [Suspect]
     Indication: RHEUMATOID ARTHRITIS
     Dosage: PRE-FILLED SYRINGES (50 MG WEEKLY)
     Route: 058
     Dates: start: 20070101, end: 20081006
  2. FOLINA [Concomitant]
     Dosage: 5 MG
     Route: 065
     Dates: start: 20041118
  3. MEDROL [Concomitant]
     Indication: RHEUMATOID ARTHRITIS
     Dosage: 4 MG
     Route: 048
     Dates: start: 20041118
  4. METHOTREXATE [Concomitant]
     Indication: RHEUMATOID ARTHRITIS
     Dosage: 15 MG
     Route: 030
     Dates: start: 20041118

REACTIONS (1)
  - RETINAL VEIN OCCLUSION [None]
